FAERS Safety Report 12960325 (Version 2)
Quarter: 2016Q4

REPORT INFORMATION
  Report Type: Spontaneous
  Country: FR (occurrence: FR)
  Receive Date: 20161121
  Receipt Date: 20161201
  Transmission Date: 20170207
  Serious: Yes (Death)
  Sender: FDA-Public Use
  Company Number: FR-TEVA-710366ROM

PATIENT
  Age: 63 Year
  Sex: Female

DRUGS (1)
  1. DOXORUBICINE TEVA [Suspect]
     Active Substance: DOXORUBICIN
     Indication: UTERINE LEIOMYOSARCOMA
     Dosage: 50 MG/25 ML; 6 CYCLES
     Route: 042
     Dates: start: 20160422, end: 20160805

REACTIONS (4)
  - Cardiac failure acute [Fatal]
  - Cardiogenic shock [Fatal]
  - Cardiotoxicity [Fatal]
  - Prescribed overdose [Unknown]

NARRATIVE: CASE EVENT DATE: 20160920
